FAERS Safety Report 6711782-8 (Version None)
Quarter: 2010Q2

REPORT INFORMATION
  Report Type: 
  Country: None (occurrence: None)
  Receive Date: 20100505
  Receipt Date: 20100428
  Transmission Date: 20101027
  Serious: Yes (Hospitalization)
  Sender: FDA-Public Use
  Company Number: B0650336A

PATIENT
  Sex: Female

DRUGS (19)
  1. TYKERB [Suspect]
     Indication: DRUG USE FOR UNKNOWN INDICATION
     Dosage: 1250MG PER DAY
     Route: 048
     Dates: start: 20090810, end: 20090907
  2. TYKERB [Suspect]
     Dosage: 1000MG PER DAY
     Route: 048
     Dates: start: 20090914, end: 20091121
  3. TYKERB [Suspect]
     Dosage: 1000MG PER DAY
     Route: 048
     Dates: start: 20091130, end: 20100321
  4. XELODA [Suspect]
     Indication: DRUG USE FOR UNKNOWN INDICATION
     Dosage: 3000MG PER DAY
     Route: 048
     Dates: start: 20090810, end: 20090903
  5. XELODA [Suspect]
     Dosage: 3000MG PER DAY
     Route: 048
     Dates: start: 20090905, end: 20090907
  6. XELODA [Suspect]
     Dosage: 3000MG PER DAY
     Route: 048
     Dates: start: 20090914, end: 20091121
  7. XELODA [Suspect]
     Dosage: 3000MG PER DAY
     Route: 048
     Dates: start: 20091130, end: 20091201
  8. XELODA [Suspect]
     Dosage: 2400MG PER DAY
     Route: 048
     Dates: start: 20100104, end: 20100321
  9. DUROTEP [Suspect]
     Indication: CANCER PAIN
     Route: 061
     Dates: start: 20091130
  10. KETOPROFEN [Concomitant]
     Indication: CANCER PAIN
     Route: 061
  11. LOXONIN [Concomitant]
     Indication: CANCER PAIN
     Route: 048
  12. OXINORM [Concomitant]
     Indication: CANCER PAIN
     Route: 048
     Dates: start: 20090831, end: 20090927
  13. PYDOXAL [Concomitant]
     Route: 048
  14. OXYCONTIN [Concomitant]
     Indication: CANCER PAIN
     Route: 048
     Dates: start: 20090928, end: 20091018
  15. NAPROXEN [Concomitant]
     Indication: CANCER PAIN
     Route: 048
     Dates: start: 20091019, end: 20091120
  16. MS CONTIN [Concomitant]
     Indication: CANCER PAIN
     Route: 048
     Dates: start: 20091019, end: 20091120
  17. OMEPRAL [Concomitant]
     Route: 048
     Dates: start: 20090810
  18. MUCOSTA [Concomitant]
     Route: 048
     Dates: start: 20090810
  19. MAGNESIUM OXIDE [Concomitant]
     Indication: CONSTIPATION
     Route: 048
     Dates: start: 20090928

REACTIONS (9)
  - BRONCHITIS [None]
  - CHEILITIS [None]
  - DIARRHOEA [None]
  - MALAISE [None]
  - NAUSEA [None]
  - PALMAR-PLANTAR ERYTHRODYSAESTHESIA SYNDROME [None]
  - PARONYCHIA [None]
  - PNEUMOTHORAX [None]
  - RASH [None]
